FAERS Safety Report 4338193-7 (Version None)
Quarter: 2004Q2

REPORT INFORMATION
  Report Type: 
  Country: None (occurrence: None)
  Receive Date: 20040414
  Receipt Date: 20040322
  Transmission Date: 20050107
  Serious: Yes (Death)
  Sender: FDA-Public Use
  Company Number: 200410967JP

PATIENT
  Age: 75 Year
  Sex: Male
  Weight: 66.4 kg

DRUGS (8)
  1. TAXOTERE [Suspect]
     Indication: LUNG SQUAMOUS CELL CARCINOMA STAGE UNSPECIFIED
     Route: 041
     Dates: start: 20031125, end: 20040126
  2. RADIATION [Suspect]
     Indication: LUNG SQUAMOUS CELL CARCINOMA STAGE UNSPECIFIED
     Dosage: DOSE: 70 GY
     Dates: start: 20031125, end: 20040121
  3. MAGLAX [Concomitant]
     Indication: CONSTIPATION
     Route: 048
     Dates: start: 20031029, end: 20040317
  4. AMLODIN [Concomitant]
     Indication: HYPERTENSION
     Route: 048
     Dates: start: 20031029, end: 20040317
  5. PURSENNID [Concomitant]
     Indication: CONSTIPATION
     Route: 048
     Dates: start: 20031029, end: 20040317
  6. GASTER [Concomitant]
     Indication: GASTRITIS
     Route: 048
     Dates: start: 20031029, end: 20040317
  7. CARBOPLATIN [Concomitant]
     Indication: LUNG SQUAMOUS CELL CARCINOMA STAGE UNSPECIFIED
     Route: 041
     Dates: start: 20031125, end: 20040126
  8. LENDORM [Concomitant]
     Indication: INSOMNIA
     Route: 048
     Dates: start: 20031025, end: 20040317

REACTIONS (4)
  - BLOOD LACTATE DEHYDROGENASE INCREASED [None]
  - PLATELET COUNT INCREASED [None]
  - RADIATION PNEUMONITIS [None]
  - RESPIRATORY FAILURE [None]
